FAERS Safety Report 15547974 (Version 1)
Quarter: 2018Q4

REPORT INFORMATION
  Report Type: Report from Study
  Country: US (occurrence: US)
  Receive Date: 20181024
  Receipt Date: 20181024
  Transmission Date: 20190205
  Serious: Yes (Other)
  Sender: FDA-Public Use
  Company Number: US-SAKK-2018SA292230AA

PATIENT
  Age: 55 Year
  Sex: Male

DRUGS (1)
  1. INSULIN GLARGINE [Suspect]
     Active Substance: INSULIN GLARGINE
     Dosage: 100 U, QD
     Route: 058

REACTIONS (2)
  - Blindness [Not Recovered/Not Resolved]
  - Diabetic retinopathy [Not Recovered/Not Resolved]
